FAERS Safety Report 24875607 (Version 2)
Quarter: 2025Q1

REPORT INFORMATION
  Report Type: Report from Study
  Country: CA (occurrence: CA)
  Receive Date: 20250122
  Receipt Date: 20250204
  Transmission Date: 20250408
  Serious: Yes (Hospitalization, Other)
  Sender: HLS THERAPEUTICS
  Company Number: CA-HLS-202500162

PATIENT
  Sex: Male

DRUGS (1)
  1. CLOZARIL [Suspect]
     Active Substance: CLOZAPINE
     Indication: Product used for unknown indication
     Dosage: DOSE: 100 MG EVERY MORNING, 525 MG DAILY AT BEDTIME
     Route: 048
     Dates: start: 20070416

REACTIONS (4)
  - Dizziness [Recovering/Resolving]
  - Orthostatic hypotension [Unknown]
  - Pneumonia [Unknown]
  - Upper respiratory tract infection [Unknown]
